FAERS Safety Report 4756799-8 (Version None)
Quarter: 2005Q3

REPORT INFORMATION
  Report Type: 
  Country: None (occurrence: None)
  Receive Date: 20050830
  Receipt Date: 20050829
  Transmission Date: 20060218
  Serious: Yes (Other)
  Sender: FDA-Public Use
  Company Number: PHRM2005FR02335

PATIENT
  Age: 9 Year
  Sex: Male
  Weight: 43 kg

DRUGS (3)
  1. NEORAL [Suspect]
     Indication: LIVER TRANSPLANT
     Dosage: 175 MG, BID
     Route: 048
     Dates: start: 20040317, end: 20050311
  2. NEORAL [Suspect]
     Dosage: 160 MG, BID
     Route: 048
     Dates: start: 20050312
  3. SOLU-MEDROL [Concomitant]
     Dosage: 5 MG, BID

REACTIONS (2)
  - HIRSUTISM [None]
  - MIGRAINE [None]
